FAERS Safety Report 6290852-5 (Version None)
Quarter: 2009Q3

REPORT INFORMATION
  Report Type: 
  Country: None (occurrence: None)
  Receive Date: 20090730
  Receipt Date: 20090723
  Transmission Date: 20100115
  Serious: Yes (Hospitalization)
  Sender: FDA-Public Use
  Company Number: IT-AMGEN-UK321252

PATIENT
  Sex: Male

DRUGS (12)
  1. PANITUMUMAB [Suspect]
     Indication: SQUAMOUS CELL CARCINOMA
     Route: 042
     Dates: start: 20081027
  2. PANITUMUMAB - STUDY PROCEDURE [Suspect]
     Indication: SQUAMOUS CELL CARCINOMA
  3. RADIATION THERAPY [Concomitant]
     Route: 050
     Dates: start: 20081027, end: 20081217
  4. CISPLATIN [Concomitant]
     Route: 065
     Dates: start: 20081027, end: 20081117
  5. TIMOPTIC [Concomitant]
     Route: 047
     Dates: start: 19980101
  6. GAVISCON [Concomitant]
     Route: 048
     Dates: start: 20040101
  7. DEXAMETHASONE [Concomitant]
     Route: 042
     Dates: start: 20081028, end: 20081214
  8. ALOXI [Concomitant]
     Route: 042
     Dates: start: 20081027, end: 20081212
  9. EMEND [Concomitant]
     Route: 048
     Dates: start: 20081027, end: 20081212
  10. GELCLAIR [Concomitant]
     Route: 061
     Dates: start: 20081110
  11. NULYTELY [Concomitant]
     Route: 048
     Dates: start: 20081110, end: 20081231
  12. POLARAMINE [Concomitant]
     Route: 048
     Dates: start: 20081117, end: 20081231

REACTIONS (1)
  - RADIATION SKIN INJURY [None]
